FAERS Safety Report 11392655 (Version 3)
Quarter: 2015Q4

REPORT INFORMATION
  Report Type: Report from Study
  Country: DE (occurrence: DE)
  Receive Date: 20150818
  Receipt Date: 20151111
  Transmission Date: 20160304
  Serious: Yes (Other)
  Sender: FDA-Public Use
  Company Number: DE-UCBSA-2015004706

PATIENT
  Sex: Female

DRUGS (9)
  1. LYRICA [Concomitant]
     Active Substance: PREGABALIN
     Indication: NEUROPATHY PERIPHERAL
     Dosage: 150-300-300 (TOTAL 750)
     Dates: start: 2014
  2. LACOSAMIDE EP [Suspect]
     Active Substance: LACOSAMIDE
     Indication: EPILEPSY
     Dosage: 100 MG, 2X/DAY (BID)
     Route: 048
     Dates: start: 201406, end: 2014
  3. LEVETIRACETAM. [Suspect]
     Active Substance: LEVETIRACETAM
     Indication: EPILEPSY
     Dosage: 1500-500-1500 (TOTAL: 3500 MG), 3X/DAY (TID)
     Dates: end: 201406
  4. LEVETIRACETAM. [Suspect]
     Active Substance: LEVETIRACETAM
     Dosage: DOSE INCREASED
     Dates: start: 2014, end: 2014
  5. LACOSAMIDE EP [Suspect]
     Active Substance: LACOSAMIDE
     Dosage: 50 MG, 2X/DAY (BID) 50-0-50
     Dates: start: 20141216, end: 20141218
  6. LEVETIRACETAM. [Suspect]
     Active Substance: LEVETIRACETAM
     Dosage: 3000 MG, 2X/DAY (BID)
     Dates: start: 20141215, end: 20141215
  7. LEVETIRACETAM. [Suspect]
     Active Substance: LEVETIRACETAM
     Dosage: 1000-1000-500-1000, 4X/DAY (QID)
     Dates: start: 20141216
  8. LEVETIRACETAM. [Suspect]
     Active Substance: LEVETIRACETAM
     Dosage: DOSE REDUCTION (750 MG X2): DAILY DOSE 1500 MG
     Dates: start: 201406, end: 2014
  9. LACOSAMIDE EP [Suspect]
     Active Substance: LACOSAMIDE
     Dosage: 100 MG, ONCE DAILY (QD)
     Dates: start: 2014, end: 20141215

REACTIONS (5)
  - Pregnancy [Unknown]
  - Premature delivery [Unknown]
  - Overdose [Unknown]
  - Off label use [Unknown]
  - Breast feeding [Unknown]

NARRATIVE: CASE EVENT DATE: 20141113
